FAERS Safety Report 12318810 (Version 1)
Quarter: 2016Q2

REPORT INFORMATION
  Report Type: Spontaneous
  Country: JP (occurrence: JP)
  Receive Date: 20160429
  Receipt Date: 20160429
  Transmission Date: 20160815
  Serious: Yes (Hospitalization, Other)
  Sender: FDA-Public Use
  Company Number: ADR-2009-6302

PATIENT
  Age: 65 Year
  Sex: Female
  Weight: 56 kg

DRUGS (3)
  1. GABALON 0.05% [Suspect]
     Active Substance: BACLOFEN
     Route: 037
     Dates: start: 20080728, end: 20080730
  2. GABALON [Suspect]
     Active Substance: BACLOFEN
     Route: 037
     Dates: start: 20080730, end: 20080730
  3. GABALON [Suspect]
     Active Substance: BACLOFEN
     Dosage: MINIMUM RATE
     Route: 037
     Dates: start: 20080730

REACTIONS (7)
  - Tachycardia paroxysmal [Recovered/Resolved]
  - Stress [Recovered/Resolved]
  - Palpitations [Recovered/Resolved]
  - Arrhythmia [Recovered/Resolved]
  - Atrioventricular block [Recovered/Resolved]
  - Feeling cold [Recovered/Resolved]
  - Cold sweat [Recovered/Resolved]

NARRATIVE: CASE EVENT DATE: 20080730
